FAERS Safety Report 4761140-0 (Version None)
Quarter: 2005Q3

REPORT INFORMATION
  Report Type: 
  Country: None (occurrence: None)
  Receive Date: 20050901
  Receipt Date: 20050602
  Transmission Date: 20060218
  Serious: Yes (Life-Threatening, Hospitalization)
  Sender: FDA-Public Use
  Company Number: 805#1#2005-00048

PATIENT
  Age: 72 Year
  Sex: Female

DRUGS (21)
  1. ALPROSTADIL [Suspect]
     Indication: LUMBAR SPINAL STENOSIS
     Dosage: 80 MCG, INTRAVENOUS DRIP
     Route: 041
     Dates: start: 20050524, end: 20050530
  2. COCARBOXYLASE (COCARBOXYLASE) [Concomitant]
  3. ALMINOPROFEN (ALMINOPROFEN) [Concomitant]
  4. SODIUM-AZULENE-SULFONATE (AZULENE) [Concomitant]
  5. MENATETRENONE (MENATETRENONE) [Concomitant]
  6. DICLOFENAC SODIUM [Concomitant]
  7. EXTRACT FROM INFLAMMATORY RABBIT SKIN INOCULATED BY VACCINA VIRUS (ORG [Concomitant]
  8. NICERGOLINE [Concomitant]
  9. TOFISOPAM [Concomitant]
  10. AMOXAPINE [Concomitant]
  11. MIANSERIN-HYDROCHLORIDE (MIANSERIN HYDROCHLORIDE) [Concomitant]
  12. MAGNESIUM-OXIDE [Concomitant]
  13. NICORANDIL (NICORANDIL) [Concomitant]
  14. DIPYRIDAMOLE [Concomitant]
  15. FAMOTIDINE [Concomitant]
  16. ASPIRIN [Concomitant]
  17. ISOSORBIDE MONONITRATE [Concomitant]
  18. DILTIAZEM HYDROCHLORIDE [Concomitant]
  19. ATORVASTATIN-CALCIUM-HYDRATE (ATORVASTATIN) [Concomitant]
  20. BENIDIPINE-HYDROCHLORIDE (BENIDIPINE HYDROCHLORIDE) [Concomitant]
  21. ETHYL-ICOSAPENTATE (ETHYL ICOSAPENTATE) [Concomitant]

REACTIONS (16)
  - ANOREXIA [None]
  - BACK PAIN [None]
  - BODY TEMPERATURE DECREASED [None]
  - CHEST PAIN [None]
  - CHILLS [None]
  - DISSEMINATED INTRAVASCULAR COAGULATION [None]
  - HYPOTENSION [None]
  - MALAISE [None]
  - PAIN IN EXTREMITY [None]
  - PLATELET COUNT DECREASED [None]
  - PYELONEPHRITIS [None]
  - PYREXIA [None]
  - SEPSIS [None]
  - VOMITING [None]
  - WHITE BLOOD CELL COUNT DECREASED [None]
  - WHITE BLOOD CELL COUNT INCREASED [None]
